FAERS Safety Report 7803626-8 (Version None)
Quarter: 2011Q4

REPORT INFORMATION
  Report Type: 
  Country: None (occurrence: None)
  Receive Date: 20111010
  Receipt Date: 20111001
  Transmission Date: 20120403
  Serious: Yes (Hospitalization)
  Sender: FDA-Public Use
  Company Number: US-BIOGENIDEC-2011BI031850

PATIENT
  Age: 40 Year
  Sex: Female

DRUGS (2)
  1. TYSABRI [Suspect]
     Indication: MULTIPLE SCLEROSIS
     Route: 042
     Dates: start: 20070313, end: 20071123
  2. TYSABRI [Suspect]
     Route: 042
     Dates: start: 20080520

REACTIONS (2)
  - GENERALISED OEDEMA [None]
  - IMPAIRED GASTRIC EMPTYING [None]
